FAERS Safety Report 20882469 (Version 1)
Quarter: 2022Q2

REPORT INFORMATION
  Report Type: Other
  Country: GB (occurrence: GB)
  Receive Date: 20220527
  Receipt Date: 20220527
  Transmission Date: 20220720
  Serious: No
  Sender: FDA-Public Use
  Company Number: GB-MHRA-MED-202205121515165480-FUVQ9

PATIENT
  Age: 20 Year
  Sex: Male

DRUGS (1)
  1. SERTRALINE HYDROCHLORIDE [Suspect]
     Active Substance: SERTRALINE HYDROCHLORIDE
     Indication: Depression
     Dosage: UNK, BETWEEN 50MG AND 200MG
     Route: 065
     Dates: start: 20190630

REACTIONS (1)
  - Sexual dysfunction [Not Recovered/Not Resolved]
